FAERS Safety Report 7584315-4 (Version None)
Quarter: 2011Q2

REPORT INFORMATION
  Report Type: 
  Country: None (occurrence: None)
  Receive Date: 20110630
  Receipt Date: 20110624
  Transmission Date: 20111010
  Serious: Yes (Hospitalization, Other)
  Sender: FDA-Public Use
  Company Number: GR-PFIZER INC-2011140931

PATIENT
  Age: 60 Year
  Sex: Male

DRUGS (2)
  1. CLINDAMYCIN HCL [Suspect]
     Indication: SOFT TISSUE INFECTION
     Route: 048
  2. AMOXICILLIN [Suspect]
     Indication: SOFT TISSUE INFECTION

REACTIONS (2)
  - ASCITES [None]
  - CLOSTRIDIAL INFECTION [None]
